FAERS Safety Report 7827520-1 (Version None)
Quarter: 2011Q4

REPORT INFORMATION
  Report Type: 
  Country: None (occurrence: None)
  Receive Date: 20111019
  Receipt Date: 20111019
  Transmission Date: 20120403
  Serious: Yes (Hospitalization)
  Sender: FDA-Public Use
  Company Number: None

PATIENT
  Age: 59 Year
  Sex: Male
  Weight: 64.4 kg

DRUGS (2)
  1. ATROPINE [Suspect]
     Indication: SALIVARY HYPERSECRETION
     Dosage: 2 DROPS TID SUBLINGUAL
     Route: 060
     Dates: start: 20110714
  2. CARBIDOPA AND LEVODOPA [Suspect]
     Indication: PARKINSON'S DISEASE
     Dosage: 1 TAB OTHER PO
     Route: 048
     Dates: start: 20030523, end: 20110719

REACTIONS (3)
  - HALLUCINATION [None]
  - DELUSION [None]
  - DELIRIUM [None]
